FAERS Safety Report 9072611 (Version 1)
Quarter: 2013Q1

REPORT INFORMATION
  Report Type: Report from Study
  Country: US (occurrence: US)
  Receive Date: 20130129
  Receipt Date: 20130129
  Transmission Date: 20140127
  Serious: No
  Sender: FDA-Public Use
  Company Number: US-ABBOTT-12P-163-0938287-00

PATIENT
  Age: 60 Year
  Sex: Female

DRUGS (14)
  1. HUMIRA 40 MG/ 0.8 ML PRE-FILLED SYRINGE [Suspect]
     Indication: PSORIATIC ARTHROPATHY
     Dates: start: 20120506, end: 20120506
  2. HUMIRA 40 MG/ 0.8 ML PRE-FILLED SYRINGE [Suspect]
     Dates: start: 20120513
  3. ESTROGEN [Concomitant]
     Indication: MENOPAUSE
     Dosage: EVERY AM
  4. PROGESTERONE [Concomitant]
     Indication: MENOPAUSE
     Dosage: EVERY PM
  5. ZYRTEC OTC [Concomitant]
     Indication: HYPERSENSITIVITY
     Dosage: 10 SOMETHING EVERY AM
  6. HYDROXYZINE [Concomitant]
     Indication: HYPERSENSITIVITY
     Dosage: EVERY PM
  7. UNKNOWN WATER PILL [Concomitant]
     Indication: SWELLING
     Dosage: EVERY AM
  8. VALTREX [Concomitant]
     Indication: HERPES VIRUS INFECTION
     Dosage: ONE HALF EVERY PM
  9. SYNTHROID [Concomitant]
     Indication: THYROIDECTOMY
     Dosage: EVERY AM
  10. SYNTHROID [Concomitant]
     Indication: THYROID NEOPLASM
  11. UNKNOWN BOOSTER MEDICATION [Concomitant]
     Indication: ROUTINE HEALTH MAINTENANCE
  12. MULTIVITAMIN [Concomitant]
     Indication: ROUTINE HEALTH MAINTENANCE
  13. COENZYMES [Concomitant]
     Indication: ROUTINE HEALTH MAINTENANCE
  14. VITAMINS [Concomitant]
     Indication: ROUTINE HEALTH MAINTENANCE

REACTIONS (3)
  - Squamous cell carcinoma [Unknown]
  - Asthenia [Not Recovered/Not Resolved]
  - Fatigue [Not Recovered/Not Resolved]
